FAERS Safety Report 22615874 (Version 4)
Quarter: 2023Q4

REPORT INFORMATION
  Report Type: Spontaneous
  Country: IT (occurrence: IT)
  Receive Date: 20230619
  Receipt Date: 20231117
  Transmission Date: 20240109
  Serious: Yes (Hospitalization, Other)
  Sender: FDA-Public Use
  Company Number: IT-ROCHE-3342116

PATIENT
  Age: 61 Year
  Sex: Male

DRUGS (7)
  1. BENDAMUSTINE [Suspect]
     Active Substance: BENDAMUSTINE
     Indication: Follicular lymphoma
     Dosage: 3 FIRST-LINE CYCLES
     Route: 042
     Dates: start: 202109, end: 202111
  2. BENDAMUSTINE [Suspect]
     Active Substance: BENDAMUSTINE
     Dosage: FOURTH CYCLE
     Route: 042
     Dates: start: 202203
  3. RITUXIMAB [Suspect]
     Active Substance: RITUXIMAB
     Indication: Follicular lymphoma
     Dosage: 3 FIRST-LINE CYCLES
     Route: 065
     Dates: start: 202109, end: 202111
  4. RITUXIMAB [Suspect]
     Active Substance: RITUXIMAB
     Dosage: FOURTH CYCLE
     Route: 065
     Dates: start: 202203
  5. TOZINAMERAN [Concomitant]
     Active Substance: TOZINAMERAN
     Indication: COVID-19 prophylaxis
     Dosage: 3 DOSES
     Route: 065
     Dates: start: 202109, end: 202111
  6. BAMLANIVIMAB\ETESEVIMAB [Concomitant]
     Active Substance: BAMLANIVIMAB\ETESEVIMAB
     Indication: Follicular lymphoma
     Dosage: 700 MG/1400 MG
     Route: 065
  7. LEVOFLOXACIN [Concomitant]
     Active Substance: LEVOFLOXACIN
     Indication: Asthenia
     Dosage: UNK
     Route: 065

REACTIONS (5)
  - Interstitial lung disease [Recovered/Resolved]
  - COVID-19 pneumonia [Recovered/Resolved]
  - COVID-19 [Recovered/Resolved]
  - Off label use [Unknown]
  - Product use issue [Unknown]

NARRATIVE: CASE EVENT DATE: 20210901
